FAERS Safety Report 24240162 (Version 1)
Quarter: 2024Q3

REPORT INFORMATION
  Report Type: Spontaneous
  Country: US (occurrence: US)
  Receive Date: 20240822
  Receipt Date: 20240822
  Transmission Date: 20241016
  Serious: No
  Sender: MERCK
  Company Number: US-009507513-2408USA007187

PATIENT
  Age: 8 Year
  Sex: Female

DRUGS (6)
  1. NOXAFIL [Suspect]
     Active Substance: POSACONAZOLE
     Indication: Disseminated mucormycosis
     Dosage: UNK
  2. NOXAFIL [Suspect]
     Active Substance: POSACONAZOLE
     Indication: Pulmonary mucormycosis
  3. NOXAFIL [Suspect]
     Active Substance: POSACONAZOLE
     Indication: Rhinocerebral mucormycosis
  4. AMPHOTERICIN B [Concomitant]
     Active Substance: AMPHOTERICIN B
     Indication: Disseminated mucormycosis
     Dosage: UNK
  5. AMPHOTERICIN B [Concomitant]
     Active Substance: AMPHOTERICIN B
     Indication: Pulmonary mucormycosis
     Dosage: 10 MILLIGRAM/KILOGRAM; INCREASED DOSE
  6. AMPHOTERICIN B [Concomitant]
     Active Substance: AMPHOTERICIN B
     Indication: Rhinocerebral mucormycosis

REACTIONS (1)
  - Product use in unapproved indication [Unknown]
